FAERS Safety Report 4911466-2 (Version None)
Quarter: 2006Q1

REPORT INFORMATION
  Report Type: 
  Country: None (occurrence: None)
  Receive Date: 20060214
  Receipt Date: 20050419
  Transmission Date: 20060701
  Serious: Yes (Hospitalization, Other)
  Sender: FDA-Public Use
  Company Number: US-MERCK-0504USA03782

PATIENT
  Age: 53 Year
  Sex: Male
  Weight: 121 kg

DRUGS (4)
  1. VIOXX [Suspect]
     Indication: ARTHRITIS
     Route: 048
     Dates: start: 20001226
  2. VIOXX [Suspect]
     Route: 048
     Dates: start: 20010101
  3. VIOXX [Suspect]
     Route: 048
     Dates: start: 20020101
  4. VIOXX [Suspect]
     Route: 048
     Dates: start: 20030101, end: 20040306

REACTIONS (4)
  - CEREBROVASCULAR ACCIDENT [None]
  - ENDOSCOPY [None]
  - INJURY [None]
  - MYOCARDIAL INFARCTION [None]
